FAERS Safety Report 21762518 (Version 1)
Quarter: 2022Q4

REPORT INFORMATION
  Report Type: Report from Study
  Country: PR (occurrence: PR)
  Receive Date: 20221221
  Receipt Date: 20221221
  Transmission Date: 20230113
  Serious: No
  Sender: FDA-Public Use
  Company Number: PR-ABBVIE-22K-131-4385090-00

PATIENT
  Age: 32 Year
  Sex: Female
  Weight: 73.481 kg

DRUGS (7)
  1. HUMIRA [Suspect]
     Active Substance: ADALIMUMAB
     Indication: Rheumatoid arthritis
     Route: 058
     Dates: start: 2018, end: 202205
  2. HUMIRA [Suspect]
     Active Substance: ADALIMUMAB
     Dosage: 40MG/0.4ML
     Route: 058
     Dates: start: 2022
  3. Nifedipine (Procardia) [Concomitant]
     Indication: Hypertension
     Route: 048
     Dates: start: 202205
  4. ELASOMERAN [Concomitant]
     Active Substance: ELASOMERAN
     Indication: COVID-19 immunisation
     Dosage: 1ST DOSE
     Route: 030
     Dates: start: 20210107, end: 20210107
  5. ELASOMERAN [Concomitant]
     Active Substance: ELASOMERAN
     Indication: COVID-19 immunisation
     Dosage: 2ND DOSE
     Route: 030
     Dates: start: 20210204, end: 20210204
  6. ELASOMERAN [Concomitant]
     Active Substance: ELASOMERAN
     Indication: COVID-19 immunisation
     Dosage: 3RD DOSE
     Route: 030
     Dates: start: 20220104, end: 20220104
  7. PREDNISONE [Concomitant]
     Active Substance: PREDNISONE
     Indication: Analgesic intervention supportive therapy
     Route: 048
     Dates: start: 202209

REACTIONS (1)
  - Maternal exposure during pregnancy [Unknown]
